FAERS Safety Report 10678617 (Version 2)
Quarter: 2014Q4

REPORT INFORMATION
  Report Type: Spontaneous
  Country: FR (occurrence: FR)
  Receive Date: 20141229
  Receipt Date: 20141229
  Transmission Date: 20150529
  Serious: Yes (Hospitalization, Other)
  Sender: FDA-Public Use
  Company Number: FR-TEVA-526985ISR

PATIENT
  Age: 37 Year
  Sex: Female

DRUGS (1)
  1. COPAXONE [Suspect]
     Active Substance: GLATIRAMER ACETATE
     Route: 058
     Dates: start: 20141121, end: 20141130

REACTIONS (12)
  - Eye irritation [Unknown]
  - Vision blurred [Unknown]
  - Injection site pain [Recovered/Resolved]
  - Muscular weakness [Unknown]
  - Fatigue [Unknown]
  - Gait disturbance [Unknown]
  - Nervousness [Unknown]
  - Drug ineffective [Unknown]
  - Migraine with aura [Recovered/Resolved]
  - Paraesthesia [Unknown]
  - Weight increased [Unknown]
  - Hypoaesthesia [Unknown]

NARRATIVE: CASE EVENT DATE: 20141122
